FAERS Safety Report 14313765 (Version 3)
Quarter: 2018Q2

REPORT INFORMATION
  Report Type: Spontaneous
  Country: PL (occurrence: PL)
  Receive Date: 20171221
  Receipt Date: 20180503
  Transmission Date: 20180711
  Serious: Yes (Life-Threatening, Hospitalization)
  Sender: FDA-Public Use
  Company Number: PHHY2017PL190507

PATIENT
  Age: 57 Year
  Sex: Female
  Weight: 87 kg

DRUGS (1)
  1. PACLITAXEL. [Suspect]
     Active Substance: PACLITAXEL
     Indication: OVARIAN CANCER
     Dosage: 350 MG, QD
     Route: 042

REACTIONS (6)
  - Feeling hot [Unknown]
  - Anaphylactic shock [Unknown]
  - Pruritus [Unknown]
  - Dyspnoea [Unknown]
  - Generalised erythema [Unknown]
  - Malaise [Unknown]

NARRATIVE: CASE EVENT DATE: 20170510
